FAERS Safety Report 15673341 (Version 1)
Quarter: 2018Q4

REPORT INFORMATION
  Report Type: Spontaneous
  Country: CA (occurrence: CA)
  Receive Date: 20181129
  Receipt Date: 20181129
  Transmission Date: 20190205
  Serious: Yes (Other)
  Sender: FDA-Public Use
  Company Number: PHHY2018CA164598

PATIENT
  Age: 53 Year
  Sex: Male
  Weight: 40 kg

DRUGS (4)
  1. EXJADE [Suspect]
     Active Substance: DEFERASIROX
     Indication: IRON OVERLOAD
     Dosage: UNK
     Route: 065
  2. SOLIRIS [Suspect]
     Active Substance: ECULIZUMAB
     Dosage: 900 MG, Q2W
     Route: 042
     Dates: start: 20160203
  3. SOLIRIS [Suspect]
     Active Substance: ECULIZUMAB
     Indication: PAROXYSMAL NOCTURNAL HAEMOGLOBINURIA
     Dosage: 600 MG, QW
     Route: 042
     Dates: start: 20160107
  4. SOLIRIS [Suspect]
     Active Substance: ECULIZUMAB
     Dosage: 900 MG, UNK (EVERY 11-12 DAYS)
     Route: 042

REACTIONS (19)
  - Headache [Unknown]
  - Neutrophil count decreased [Unknown]
  - Reticulocyte count increased [Unknown]
  - Haemolysis [Unknown]
  - Mean cell volume increased [Unknown]
  - Drug ineffective [Unknown]
  - Platelet count decreased [Unknown]
  - White blood cell count decreased [Unknown]
  - Blood lactate dehydrogenase increased [Unknown]
  - Blood bilirubin increased [Unknown]
  - Haemoglobin decreased [Not Recovered/Not Resolved]
  - Macrocytosis [Unknown]
  - Red cell distribution width increased [Unknown]
  - Alanine aminotransferase increased [Unknown]
  - Fatigue [Unknown]
  - Haematocrit decreased [Unknown]
  - Infection [Unknown]
  - Serum ferritin increased [Unknown]
  - Immature granulocyte count increased [Unknown]

NARRATIVE: CASE EVENT DATE: 2018
